FAERS Safety Report 20212340 (Version 1)
Quarter: 2021Q4

REPORT INFORMATION
  Report Type: Report from Study
  Country: CN (occurrence: CN)
  Receive Date: 20211221
  Receipt Date: 20211221
  Transmission Date: 20220303
  Serious: Yes (Other)
  Sender: FDA-Public Use
  Company Number: CN-Merck Healthcare KGaA-9276967

PATIENT
  Age: 70 Year
  Sex: Male

DRUGS (7)
  1. CETUXIMAB [Suspect]
     Active Substance: CETUXIMAB
     Indication: Oropharyngeal squamous cell carcinoma
     Dosage: 400 MG/M2, UNKNOWN (600 MG CYCLE 1 ON DAY 1)
     Route: 065
  2. CETUXIMAB [Suspect]
     Active Substance: CETUXIMAB
     Dosage: 250 MG/M2, WEEKLY (1/W) (400MG D1, QW)
     Route: 065
  3. DOCETAXEL [Concomitant]
     Active Substance: DOCETAXEL
     Indication: Oropharyngeal squamous cell carcinoma
     Dosage: 60 MG/M2, UNKNOWN (90 MG ON CYCLE 1, DAY 1)
     Route: 065
  4. DOCETAXEL [Concomitant]
     Active Substance: DOCETAXEL
     Dosage: 90 MG, OTHER (ONCE IN 21 DAYS, CYCLE 2 TO 6)
     Route: 065
  5. CARBOPLATIN [Concomitant]
     Active Substance: CARBOPLATIN
     Indication: Oropharyngeal squamous cell carcinoma
     Dosage: 300 MG/M2, OTHER (450 MG ON CYCLE 1)
     Route: 065
  6. CARBOPLATIN [Concomitant]
     Active Substance: CARBOPLATIN
     Dosage: 400 MG, OTHER (ONCE IN 21 DAYS, ON CYCLE 2-4)
     Route: 065
  7. CARBOPLATIN [Concomitant]
     Active Substance: CARBOPLATIN
     Dosage: 350 MG, OTHER (ONCE IN 21 DAYS, ON CYCLE 5-6)
     Route: 065

REACTIONS (4)
  - Leukopenia [Unknown]
  - Platelet count decreased [Unknown]
  - Neutrophil count decreased [Unknown]
  - Anaemia [Unknown]
